FAERS Safety Report 12428494 (Version 2)
Quarter: 2016Q3

REPORT INFORMATION
  Report Type: Spontaneous
  Country: IL (occurrence: IL)
  Receive Date: 20160602
  Receipt Date: 20160811
  Transmission Date: 20161109
  Serious: Yes (Other)
  Sender: FDA-Public Use
  Company Number: IL-EMD SERONO-8086515

PATIENT
  Age: 32 Year
  Sex: Female

DRUGS (3)
  1. GONAL-F [Suspect]
     Active Substance: FOLLITROPIN
     Indication: INFERTILITY
     Dates: start: 2014
  2. GONAL-F [Suspect]
     Active Substance: FOLLITROPIN
     Dates: start: 201603, end: 20160416
  3. OVITRELLE [Suspect]
     Active Substance: CHORIOGONADOTROPIN ALFA
     Indication: INFERTILITY
     Dates: start: 201603, end: 20160416

REACTIONS (1)
  - Thyroiditis subacute [Recovered/Resolved]

NARRATIVE: CASE EVENT DATE: 20160502
